FAERS Safety Report 8203217-3 (Version None)
Quarter: 2012Q1

REPORT INFORMATION
  Report Type: 
  Country: None (occurrence: None)
  Receive Date: 20120312
  Receipt Date: 20120301
  Transmission Date: 20120608
  Serious: Yes (Other)
  Sender: FDA-Public Use
  Company Number: US-ROCHE-1010296

PATIENT
  Sex: Female
  Weight: 49.94 kg

DRUGS (2)
  1. ACCUTANE [Suspect]
     Indication: ACNE
     Route: 065
     Dates: start: 19960101
  2. ACCUTANE [Suspect]
     Route: 065
     Dates: start: 19970101, end: 19980601

REACTIONS (10)
  - FISTULA [None]
  - COLITIS ULCERATIVE [None]
  - INFLAMMATORY BOWEL DISEASE [None]
  - CROHN'S DISEASE [None]
  - CHOLELITHIASIS [None]
  - INTESTINAL OBSTRUCTION [None]
  - EPISTAXIS [None]
  - DRY SKIN [None]
  - DEPRESSION [None]
  - ALOPECIA [None]
